FAERS Safety Report 24281251 (Version 1)
Quarter: 2024Q3

REPORT INFORMATION
  Report Type: Spontaneous
  Country: GB (occurrence: GB)
  Receive Date: 20240904
  Receipt Date: 20240904
  Transmission Date: 20241017
  Serious: Yes (Hospitalization, Other)
  Sender: MYLAN
  Company Number: GB-MYLANLABS-2024M1079992

PATIENT
  Sex: Female

DRUGS (1)
  1. CLOZARIL [Suspect]
     Active Substance: CLOZAPINE
     Indication: Schizophrenia
     Dosage: UNK
     Route: 048
     Dates: start: 20190521, end: 202407

REACTIONS (8)
  - Brain abscess [Unknown]
  - Unresponsive to stimuli [Unknown]
  - Schizophrenia [Unknown]
  - Seizure [Unknown]
  - Neutropenia [Recovering/Resolving]
  - Delirium [Unknown]
  - Agitation [Unknown]
  - Confusional state [Unknown]
